FAERS Safety Report 4987481-X (Version None)
Quarter: 2006Q2

REPORT INFORMATION
  Report Type: 
  Country: None (occurrence: None)
  Receive Date: 20060427
  Receipt Date: 20060427
  Transmission Date: 20061013
  Serious: Yes (Hospitalization)
  Sender: FDA-Public Use
  Company Number: None

PATIENT
  Age: 86 Year
  Sex: Female

DRUGS (2)
  1. ASPIRIN [Suspect]
  2. ERLOTINIB [Suspect]

REACTIONS (6)
  - ADVERSE DRUG REACTION [None]
  - DIARRHOEA [None]
  - HAEMORRHAGE [None]
  - NAUSEA [None]
  - ULCER HAEMORRHAGE [None]
  - VOMITING [None]
